FAERS Safety Report 6115886-2 (Version None)
Quarter: 2009Q1

REPORT INFORMATION
  Report Type: 
  Country: None (occurrence: None)
  Receive Date: 20090309
  Receipt Date: 20090220
  Transmission Date: 20090719
  Serious: Yes (Life-Threatening, Hospitalization)
  Sender: FDA-Public Use
  Company Number: AEUSA200900032

PATIENT
  Age: 47 Year
  Sex: Male

DRUGS (21)
  1. GAMUNEX [Suspect]
     Indication: FOCAL GLOMERULOSCLEROSIS
     Dosage: IV
     Route: 042
     Dates: start: 20070401, end: 20070401
  2. ALBUMIN (HUMAN) [Suspect]
     Indication: DIALYSIS
  3. VANCOMYCIN [Concomitant]
  4. ZOSYN [Concomitant]
  5. BROMOCRIPTINE [Concomitant]
  6. DILTIAZEM [Concomitant]
  7. CALCIUM [Concomitant]
  8. PREVACID [Concomitant]
  9. RENAGEL [Concomitant]
  10. LOPRESSOR [Concomitant]
  11. MICARDIS [Concomitant]
  12. CHLOROPHYLL [Concomitant]
  13. SYNTHROID [Concomitant]
  14. HYDRALAZINE HCL [Concomitant]
  15. NORVASC [Concomitant]
  16. PROCRIT [Concomitant]
  17. PREDNISONE [Concomitant]
  18. LABETALOL HCL [Concomitant]
  19. IMODIUM [Concomitant]
  20. SENSIPAR [Concomitant]
  21. TYLENOL [Concomitant]

REACTIONS (11)
  - CYTOTOXIC OEDEMA [None]
  - DISEASE RECURRENCE [None]
  - DYSARTHRIA [None]
  - FOCAL GLOMERULOSCLEROSIS [None]
  - LEUKOENCEPHALOPATHY [None]
  - MENTAL STATUS CHANGES [None]
  - MULTI-ORGAN FAILURE [None]
  - POSTOPERATIVE RENAL FAILURE [None]
  - PYREXIA [None]
  - RENAL TRANSPLANT [None]
  - RESPIRATORY FAILURE [None]
